FAERS Safety Report 24438308 (Version 1)
Quarter: 2024Q4

REPORT INFORMATION
  Report Type: Spontaneous
  Country: US (occurrence: None)
  Receive Date: 20241014
  Receipt Date: 20241014
  Transmission Date: 20250114
  Serious: Yes (Hospitalization)
  Sender: Public
  Company Number: None

PATIENT
  Age: 32 Year
  Sex: Female

DRUGS (5)
  1. TEZSPIRE [Suspect]
     Active Substance: TEZEPELUMAB-EKKO
     Indication: Asthma
     Dosage: FREQUENCY : EVERY OTHER WEEK;?
     Route: 058
     Dates: start: 202310
  2. STERILE WATER SDV [Concomitant]
  3. SODIUM CHLORIDE [Concomitant]
     Active Substance: SODIUM CHLORIDE
  4. RUCONEST SDV [Concomitant]
  5. TAKHZYRO PFS [Concomitant]

REACTIONS (2)
  - Asthma [None]
  - Asthma [None]

NARRATIVE: CASE EVENT DATE: 20241003
